FAERS Safety Report 11753180 (Version 1)
Quarter: 2015Q4

REPORT INFORMATION
  Report Type: Spontaneous
  Country: US (occurrence: US)
  Receive Date: 20151119
  Receipt Date: 20151119
  Transmission Date: 20160304
  Serious: No
  Sender: FDA-Public Use
  Company Number: US-ETHYPHARM USA CORP-EY-BP-US-2015-181

PATIENT
  Age: 25 Year

DRUGS (1)
  1. SUBUTEX [Suspect]
     Active Substance: BUPRENORPHINE HYDROCHLORIDE
     Indication: PRODUCT USED FOR UNKNOWN INDICATION

REACTIONS (13)
  - Vein collapse [None]
  - Peripheral swelling [None]
  - Injection site pain [None]
  - Injection site erythema [None]
  - Drug dependence [None]
  - Intentional product misuse [None]
  - Intentional product use issue [None]
  - Swelling [None]
  - Erythema [None]
  - Skin injury [None]
  - Injection site extravasation [None]
  - Skin wound [None]
  - Vascular occlusion [None]
